FAERS Safety Report 16420539 (Version 1)
Quarter: 2019Q2

REPORT INFORMATION
  Report Type: Spontaneous
  Country: CN (occurrence: CN)
  Receive Date: 20190612
  Receipt Date: 20190612
  Transmission Date: 20190711
  Serious: Yes (Other)
  Sender: FDA-Public Use
  Company Number: CN-PFIZER INC-2019247558

PATIENT
  Age: 88 Year
  Sex: Male
  Weight: 44 kg

DRUGS (2)
  1. METHYLPREDNISOLONE. [Suspect]
     Active Substance: METHYLPREDNISOLONE
     Indication: LUNG INFECTION
     Dosage: 8 MG, 3X/DAY
     Route: 048
     Dates: start: 20190514, end: 20190518
  2. METHYLPREDNISOLONE. [Suspect]
     Active Substance: METHYLPREDNISOLONE
     Indication: PNEUMONIA

REACTIONS (3)
  - Oral candidiasis [Recovering/Resolving]
  - Leukoplakia oral [Recovering/Resolving]
  - Oral infection [Recovering/Resolving]

NARRATIVE: CASE EVENT DATE: 20190518
